FAERS Safety Report 15826476 (Version 1)
Quarter: 2018Q4

REPORT INFORMATION
  Report Type: Spontaneous
  Country: US (occurrence: US)
  Receive Date: 20181218
  Receipt Date: 20181218
  Transmission Date: 20190205
  Serious: No
  Sender: FDA-Public Use
  Company Number: None

PATIENT

DRUGS (2)
  1. THROMBIN [Suspect]
     Active Substance: THROMBIN
     Route: 061
  2. SODIUM CHLORIDE. [Suspect]
     Active Substance: SODIUM CHLORIDE

REACTIONS (4)
  - Product packaging confusion [None]
  - Product preparation issue [None]
  - Product preparation error [None]
  - Intercepted product administration error [None]
